FAERS Safety Report 13383207 (Version 1)
Quarter: 2017Q1

REPORT INFORMATION
  Report Type: Spontaneous
  Country: US (occurrence: US)
  Receive Date: 20170329
  Receipt Date: 20170329
  Transmission Date: 20170429
  Serious: No
  Sender: FDA-Public Use
  Company Number: US-CLOVIS ONCOLOGY-CLO-2017-000039

PATIENT
  Age: 49 Year
  Sex: Female

DRUGS (1)
  1. RUBRACA [Suspect]
     Active Substance: RUCAPARIB CAMSYLATE
     Indication: OVARIAN CANCER
     Dosage: 600 MG, BID
     Route: 048
     Dates: start: 20170123

REACTIONS (5)
  - Fatigue [Unknown]
  - Nausea [Recovered/Resolved]
  - Dysgeusia [Unknown]
  - Constipation [Unknown]
  - Early satiety [Unknown]

NARRATIVE: CASE EVENT DATE: 20170123
